FAERS Safety Report 7772093-5 (Version None)
Quarter: 2011Q3

REPORT INFORMATION
  Report Type: 
  Country: None (occurrence: None)
  Receive Date: 20110922
  Receipt Date: 20101217
  Transmission Date: 20111222
  Serious: No
  Sender: FDA-Public Use
  Company Number: US-ASTRAZENECA-2010SE60007

PATIENT
  Age: 38 Year
  Sex: Female

DRUGS (1)
  1. SEROQUEL XR [Suspect]
     Route: 048

REACTIONS (6)
  - BLOOD CHOLESTEROL INCREASED [None]
  - MUSCLE STRAIN [None]
  - BACK PAIN [None]
  - PANCREATITIS [None]
  - MALAISE [None]
  - BLOOD TRIGLYCERIDES INCREASED [None]
